FAERS Safety Report 8766120 (Version 2)
Quarter: 2013Q1

REPORT INFORMATION
  Report Type: Report from Study
  Country: CA (occurrence: CA)
  Receive Date: 20120904
  Receipt Date: 20130110
  Transmission Date: 20140127
  Serious: Yes (Other)
  Sender: FDA-Public Use
  Company Number: CA-ROCHE-1104836

PATIENT
  Age: 64 Year
  Sex: Female
  Weight: 52.66 kg

DRUGS (10)
  1. TOCILIZUMAB [Suspect]
     Indication: RHEUMATOID ARTHRITIS
     Route: 042
     Dates: start: 20110629
  2. PERCOCET [Concomitant]
  3. FENTANYL PATCH [Concomitant]
  4. AMITRIPTYLINE [Concomitant]
  5. NORVASC [Concomitant]
  6. MELOXICAM [Concomitant]
  7. NEXIUM [Concomitant]
  8. ATENOLOL [Concomitant]
  9. ATENOLOL [Concomitant]
  10. ATIVAN [Concomitant]

REACTIONS (8)
  - Therapeutic product ineffective [Unknown]
  - Amnesia [Not Recovered/Not Resolved]
  - Nausea [Not Recovered/Not Resolved]
  - Abdominal discomfort [Not Recovered/Not Resolved]
  - Dizziness [Not Recovered/Not Resolved]
  - Decreased appetite [Not Recovered/Not Resolved]
  - Weight increased [Not Recovered/Not Resolved]
  - Malaise [Unknown]
